FAERS Safety Report 16303208 (Version 4)
Quarter: 2019Q2

REPORT INFORMATION
  Report Type: Report from Study
  Country: GB (occurrence: GB)
  Receive Date: 20190513
  Receipt Date: 20190624
  Transmission Date: 20190711
  Serious: Yes (Hospitalization)
  Sender: FDA-Public Use
  Company Number: GB-ROCHE-2314699

PATIENT
  Age: 59 Year
  Sex: Male
  Weight: 61 kg

DRUGS (10)
  1. COBIMETINIB. [Suspect]
     Active Substance: COBIMETINIB
     Indication: NEOPLASM
     Dosage: ON 04/MAY/2019, RECEIVED 60 MG MOST RECENT DOSE OF COBIMETINIB
     Route: 048
     Dates: start: 20190502
  2. AMLODIPINE [Concomitant]
     Active Substance: AMLODIPINE BESYLATE
     Indication: BLOOD PRESSURE MEASUREMENT
     Route: 065
     Dates: start: 2009
  3. PROPRANOLOL [Concomitant]
     Active Substance: PROPRANOLOL HYDROCHLORIDE
     Indication: HYPERTENSION
     Route: 065
     Dates: start: 2009
  4. ATEZOLIZUMAB. [Suspect]
     Active Substance: ATEZOLIZUMAB
     Indication: NEOPLASM
     Dosage: ON SAME DAY, RECEIVED MOST RECENT DOSE OF ATEZOLIZUMAB PRIOR TO SERIOUS ADVERSE EVENT
     Route: 042
     Dates: start: 20190502
  5. FENTANYL. [Concomitant]
     Active Substance: FENTANYL
     Indication: PAIN
     Route: 065
  6. ZOPICLONE [Concomitant]
     Active Substance: ZOPICLONE
     Indication: INSOMNIA
     Route: 065
     Dates: start: 201902
  7. DIFFLAM [Concomitant]
     Active Substance: BENZYDAMINE HYDROCHLORIDE
     Route: 065
     Dates: start: 201903
  8. MIRTAZAPINE. [Concomitant]
     Active Substance: MIRTAZAPINE
     Indication: DEPRESSION
     Route: 065
     Dates: start: 201809
  9. ORAMORPH [MORPHINE SULFATE] [Concomitant]
     Indication: PAIN
     Route: 065
     Dates: start: 201812
  10. ATORVASTATIN [Concomitant]
     Active Substance: ATORVASTATIN
     Indication: CARDIOVASCULAR EVENT PROPHYLAXIS
     Route: 065
     Dates: start: 2009

REACTIONS (2)
  - Respiratory tract oedema [Not Recovered/Not Resolved]
  - Face oedema [Not Recovered/Not Resolved]

NARRATIVE: CASE EVENT DATE: 20190504
